FAERS Safety Report 16774395 (Version 1)
Quarter: 2019Q3

REPORT INFORMATION
  Report Type: Spontaneous
  Country: IT (occurrence: IT)
  Receive Date: 20190905
  Receipt Date: 20190905
  Transmission Date: 20191005
  Serious: Yes (Other)
  Sender: FDA-Public Use
  Company Number: IT-JNJFOC-20120307716

PATIENT
  Age: 3 Year
  Sex: Male

DRUGS (1)
  1. IBUPROFEN. [Suspect]
     Active Substance: IBUPROFEN
     Indication: PRODUCT USED FOR UNKNOWN INDICATION
     Dosage: SHORT TERM INGESTION
     Route: 048

REACTIONS (4)
  - Gastric ulcer [Unknown]
  - Gastritis haemorrhagic [Unknown]
  - Obstruction gastric [Unknown]
  - Prepyloric stenosis [Unknown]
